FAERS Safety Report 9752996 (Version 1)
Quarter: 2013Q4

REPORT INFORMATION
  Report Type: Spontaneous
  Country: US (occurrence: None)
  Receive Date: 20131211
  Receipt Date: 20131211
  Transmission Date: 20140711
  Serious: Yes (Hospitalization)
  Sender: FDA-Public Use
  Company Number: FK201305247

PATIENT
  Age: 79 Year
  Sex: Female

DRUGS (3)
  1. AMIODARONE HCL [Suspect]
     Indication: ATRIAL FLUTTER
     Route: 042
  2. AMIODARONE HCL [Suspect]
     Indication: VENTRICULAR TACHYCARDIA
     Route: 042
  3. MEXILETINE (MEXILETINE) [Concomitant]

REACTIONS (14)
  - Ataxia [None]
  - Paraesthesia [None]
  - Lethargy [None]
  - Eosinophilia [None]
  - Asthenia [None]
  - Liver function test abnormal [None]
  - Balance disorder [None]
  - Ventricular tachycardia [None]
  - Hyporeflexia [None]
  - Gait disturbance [None]
  - Aspartate aminotransferase increased [None]
  - Alanine aminotransferase increased [None]
  - Lacunar infarction [None]
  - Neurotoxicity [None]
